FAERS Safety Report 4558185-2 (Version None)
Quarter: 2005Q1

REPORT INFORMATION
  Report Type: 
  Country: None (occurrence: None)
  Receive Date: 20050107
  Receipt Date: 20040302
  Transmission Date: 20050727
  Serious: Yes (Hospitalization)
  Sender: FDA-Public Use
  Company Number: 04P-163-0252307-00

PATIENT
  Sex: 0

DRUGS (1)
  1. OMNICEF [Suspect]
     Dosage: PER ORAL
     Route: 048

REACTIONS (2)
  - CLOSTRIDIAL INFECTION [None]
  - DIARRHOEA HAEMORRHAGIC [None]
